FAERS Safety Report 7051773-3 (Version None)
Quarter: 2010Q4

REPORT INFORMATION
  Report Type: 
  Country: None (occurrence: None)
  Receive Date: 20101019
  Receipt Date: 20101008
  Transmission Date: 20110411
  Serious: Yes (Hospitalization, Other)
  Sender: FDA-Public Use
  Company Number: MY-BAXTER-2010BH025608

PATIENT
  Age: 32 Month
  Sex: Male
  Weight: 11 kg

DRUGS (2)
  1. SUPRANE [Suspect]
     Indication: ANAESTHESIA
     Route: 065
     Dates: start: 20101008, end: 20101008
  2. SUPRANE [Suspect]
     Indication: SURGERY
     Route: 065
     Dates: start: 20101008, end: 20101008

REACTIONS (2)
  - BRONCHOSPASM [None]
  - LIGHT ANAESTHESIA [None]
